FAERS Safety Report 6008446-5 (Version None)
Quarter: 2008Q4

REPORT INFORMATION
  Report Type: 
  Country: None (occurrence: None)
  Receive Date: 20081217
  Receipt Date: 20081208
  Transmission Date: 20090506
  Serious: Yes (Hospitalization, Other)
  Sender: FDA-Public Use
  Company Number: US-AMGEN-QUU320786

PATIENT
  Sex: Female
  Weight: 80.4 kg

DRUGS (8)
  1. ENBREL [Suspect]
     Indication: ANKYLOSING SPONDYLITIS
     Route: 058
     Dates: start: 20080111
  2. METHOTREXATE [Concomitant]
     Dates: start: 20060101
  3. AZULFIDINE EN-TABS [Concomitant]
     Dates: start: 20060101
  4. NEURONTIN [Concomitant]
     Dates: start: 20060101
  5. MOBIC [Concomitant]
     Dates: start: 20060101
  6. KLONOPIN [Concomitant]
  7. PREDNISONE TAB [Concomitant]
  8. FOLIC ACID [Concomitant]
     Dates: start: 20060101

REACTIONS (6)
  - DISLOCATION OF VERTEBRA [None]
  - INTERVERTEBRAL DISC DEGENERATION [None]
  - LUMBAR SPINAL STENOSIS [None]
  - NERVE COMPRESSION [None]
  - OSTEOARTHRITIS [None]
  - SPINAL FRACTURE [None]
